FAERS Safety Report 5134166-5 (Version None)
Quarter: 2006Q4

REPORT INFORMATION
  Report Type: 
  Country: None (occurrence: None)
  Receive Date: 20061024
  Receipt Date: 20061017
  Transmission Date: 20070319
  Serious: Yes (Other)
  Sender: FDA-Public Use
  Company Number: AR-BOEHRINGER INGELHEIM PHARMACEUTICALS, INC.-2006-DE-05451GD

PATIENT
  Age: 31 Year
  Sex: Female

DRUGS (8)
  1. NEVIRAPINE [Suspect]
     Indication: ACQUIRED IMMUNODEFICIENCY SYNDROME
     Dates: start: 20030101
  2. NEVIRAPINE [Suspect]
  3. NEVIRAPINE [Suspect]
  4. STAVUDINE [Suspect]
     Indication: ACQUIRED IMMUNODEFICIENCY SYNDROME
     Dates: start: 20030101
  5. STAVUDINE [Suspect]
  6. LAMIVUDINE [Suspect]
     Indication: ACQUIRED IMMUNODEFICIENCY SYNDROME
     Dates: start: 20030101
  7. LAMIVUDINE [Suspect]
  8. ABACAVIR [Suspect]
     Indication: ACQUIRED IMMUNODEFICIENCY SYNDROME
     Dates: start: 20030101

REACTIONS (3)
  - BLOOD HIV RNA INCREASED [None]
  - GASTRIC DISORDER [None]
  - NON-HODGKIN'S LYMPHOMA [None]
